FAERS Safety Report 7281524-9 (Version None)
Quarter: 2011Q1

REPORT INFORMATION
  Report Type: 
  Country: None (occurrence: None)
  Receive Date: 20110208
  Receipt Date: 20110202
  Transmission Date: 20110831
  Serious: Yes (Other)
  Sender: FDA-Public Use
  Company Number: JP-PFIZER INC-2011023575

PATIENT
  Age: 26 Year
  Sex: Male

DRUGS (1)
  1. REVATIO [Suspect]
     Indication: PULMONARY HYPERTENSION
     Route: 048

REACTIONS (2)
  - RENAL FAILURE ACUTE [None]
  - BLOOD PRESSURE DECREASED [None]
